FAERS Safety Report 16354960 (Version 1)
Quarter: 2019Q2

REPORT INFORMATION
  Report Type: Spontaneous
  Country: US (occurrence: US)
  Receive Date: 20190524
  Receipt Date: 20190524
  Transmission Date: 20190711
  Serious: No
  Sender: FDA-Public Use
  Company Number: US-JNJFOC-20190500880

PATIENT
  Sex: Female

DRUGS (2)
  1. MENS ROGAINE [Suspect]
     Active Substance: MINOXIDIL
     Indication: ALOPECIA
     Dosage: AS INSTRUCTED TWICE DAILY
     Route: 061
  2. MENS ROGAINE [Suspect]
     Active Substance: MINOXIDIL
     Route: 061

REACTIONS (2)
  - Product use issue [Unknown]
  - Intentional product misuse [Unknown]
